FAERS Safety Report 14099699 (Version 1)
Quarter: 2017Q4

REPORT INFORMATION
  Report Type: Report from Study
  Country: ES (occurrence: ES)
  Receive Date: 20171017
  Receipt Date: 20171017
  Transmission Date: 20180321
  Serious: Yes (Hospitalization)
  Sender: FDA-Public Use
  Company Number: ES-PFIZER INC-2017446584

PATIENT
  Age: 79 Year
  Sex: Male

DRUGS (14)
  1. ANAFRANIL [Concomitant]
     Active Substance: CLOMIPRAMINE HYDROCHLORIDE
     Dosage: 20 MG, 3X/DAY (EVERY 8 HOURS)
     Route: 048
     Dates: start: 20040706
  2. MIRAPEXIN [Concomitant]
     Active Substance: PRAMIPEXOLE
     Dosage: UNK MG, 1X/DAY (EVERY 24 HOURS)
     Route: 048
     Dates: start: 20121030
  3. OMACOR [Concomitant]
     Active Substance: OMEGA-3-ACID ETHYL ESTERS
     Dosage: 2 DF, 1X/DAY (EVERY 24 HOURS, 2 TABLETS AS REPORTED)
     Route: 048
     Dates: start: 20151030
  4. PANTOPRAZOLE [Concomitant]
     Active Substance: PANTOPRAZOLE
     Dosage: 40 MG, 1X/DAY (EVERY 24 HOURS)
     Route: 048
     Dates: start: 20101109
  5. ROSUVASTATIN. [Concomitant]
     Active Substance: ROSUVASTATIN
     Dosage: 10 MG, 1X/DAY (EVERY 24 HOURS)
     Route: 048
     Dates: start: 20140630
  6. FUROSEMIDE. [Interacting]
     Active Substance: FUROSEMIDE
     Dosage: 40 MG, 2X/DAY (EVERY 12 HOURS)
     Route: 048
     Dates: start: 20170120
  7. ADENURIC [Concomitant]
     Active Substance: FEBUXOSTAT
     Dosage: 80 MG, 1X/DAY (EVERY 24 HOURS)
     Route: 048
     Dates: start: 20160628
  8. DOXAZOSIN [Concomitant]
     Active Substance: DOXAZOSIN\DOXAZOSIN MESYLATE
     Dosage: 4 MG, 2X/DAY (EVERY 12 HOURS)
     Route: 048
     Dates: start: 20160308
  9. APIDRA [Concomitant]
     Active Substance: INSULIN GLULISINE
     Dosage: 16.667 IU, 3X/DAY (EVERY 8 HOURS, PREPRANDIAL 15-20-25 )
     Route: 058
     Dates: start: 20141201
  10. ALDACTONE [Suspect]
     Active Substance: SPIRONOLACTONE
     Dosage: 25 MG, 1X/DAY (EVERY 24 HOURS)
     Route: 048
     Dates: start: 20170120
  11. ENALAPRIL [Concomitant]
     Active Substance: ENALAPRIL
     Dosage: 20 MG, 2X/DAY (EVERY 12 HOURS)
     Route: 048
     Dates: start: 20161017
  12. ADALAT [Concomitant]
     Active Substance: NIFEDIPINE
     Dosage: 60 MG, 2X/DAY (EVERY 12 HOURS)
     Route: 048
     Dates: start: 20161017
  13. ADIRO [Concomitant]
     Active Substance: ASPIRIN
     Dosage: 100 MG, 1X/DAY (EVERY 24 HOURS)
     Route: 048
     Dates: start: 20140122
  14. TOUJEO [Concomitant]
     Active Substance: INSULIN GLARGINE
     Dosage: 35 IU, 1X/DAY (EVERY 24 HOURS)
     Route: 058
     Dates: start: 20160531

REACTIONS (2)
  - Acute kidney injury [Recovered/Resolved]
  - Drug interaction [Recovered/Resolved]

NARRATIVE: CASE EVENT DATE: 20170122
